FAERS Safety Report 4928549-3 (Version None)
Quarter: 2006Q1

REPORT INFORMATION
  Report Type: 
  Country: None (occurrence: None)
  Receive Date: 20060223
  Receipt Date: 20060206
  Transmission Date: 20060701
  Serious: Yes (Hospitalization)
  Sender: FDA-Public Use
  Company Number: 2006_000007

PATIENT
  Sex: Male

DRUGS (5)
  1. DEPOCYT [Suspect]
     Indication: LEUKAEMIA
     Dosage: 50 MG; QOW; INTH
     Route: 037
  2. DEPOCYT [Suspect]
     Indication: PROPHYLAXIS
     Dosage: 50 MG; QOW; INTH
     Route: 037
  3. DEXAMETHASONE [Concomitant]
  4. METHOTREXATE [Concomitant]
  5. CYTARABINE [Concomitant]

REACTIONS (8)
  - ASTHENIA [None]
  - COMA [None]
  - EYE ROLLING [None]
  - HYPERGLYCAEMIA [None]
  - HYPOXIA [None]
  - LETHARGY [None]
  - PAIN IN EXTREMITY [None]
  - PYREXIA [None]
